FAERS Safety Report 7460994-7 (Version None)
Quarter: 2011Q2

REPORT INFORMATION
  Report Type: 
  Country: None (occurrence: None)
  Receive Date: 20110505
  Receipt Date: 20110427
  Transmission Date: 20111010
  Serious: Yes (Hospitalization, Other)
  Sender: FDA-Public Use
  Company Number: US-AMGEN-US359310

PATIENT
  Age: 36 Year
  Sex: Male

DRUGS (10)
  1. VICON FORTE [Concomitant]
  2. PREDNISOLONE [Concomitant]
  3. ENBREL [Suspect]
     Indication: PSORIASIS
     Dosage: 50 MG, 2 TIMES/WK
     Dates: start: 20040501, end: 20041101
  4. ENBREL [Suspect]
     Indication: PSORIATIC ARTHROPATHY
     Dosage: UNK
     Dates: start: 20050201, end: 20050401
  5. ACCUPRIL [Concomitant]
     Dosage: 40 MG, UNK
  6. AMBIEN [Concomitant]
     Dosage: 10 MG, QOD
  7. VICODIN [Concomitant]
     Dosage: UNK UNK, PRN
  8. PROTOPIC [Concomitant]
     Dosage: UNK UNK, PRN
     Route: 061
  9. REMICADE [Concomitant]
     Dosage: UNK UNK, UNK
     Route: 042
  10. HYDROCHLOROTHIAZIDE 1A PHARMA [Concomitant]

REACTIONS (59)
  - ALOPECIA UNIVERSALIS [None]
  - SYNCOPE [None]
  - COSTOCHONDRITIS [None]
  - POOR QUALITY SLEEP [None]
  - INCREASED TENDENCY TO BRUISE [None]
  - SYNOVIAL CYST [None]
  - PHYSICAL ASSAULT [None]
  - NECK PAIN [None]
  - EXFOLIATIVE RASH [None]
  - DRUG ABUSE [None]
  - DERMOID CYST [None]
  - HUMERUS FRACTURE [None]
  - MIGRAINE [None]
  - PSORIATIC ARTHROPATHY [None]
  - RESPIRATORY MUSCLE WEAKNESS [None]
  - AORTIC VALVE STENOSIS [None]
  - CONNECTIVE TISSUE DISORDER [None]
  - CYANOSIS [None]
  - DEPRESSION [None]
  - CHRONIC FATIGUE SYNDROME [None]
  - ASTHENIA [None]
  - BLOOD PRESSURE DECREASED [None]
  - MYALGIA [None]
  - FACET JOINT SYNDROME [None]
  - SKIN CHAPPED [None]
  - ACTIVITIES OF DAILY LIVING IMPAIRED [None]
  - DRY SKIN [None]
  - TINNITUS [None]
  - ALOPECIA TOTALIS [None]
  - AORTIC VALVE INCOMPETENCE [None]
  - DYSURIA [None]
  - ABDOMINAL PAIN [None]
  - HERPES VIRUS INFECTION [None]
  - SKIN CANDIDA [None]
  - LYMPHADENOPATHY [None]
  - MENTAL DISORDER [None]
  - CLUBBING [None]
  - STRESS [None]
  - POLLAKIURIA [None]
  - DIZZINESS [None]
  - DYSPNOEA [None]
  - OEDEMA PERIPHERAL [None]
  - VERTIGO [None]
  - LIVER FUNCTION TEST ABNORMAL [None]
  - MUSCULOSKELETAL STIFFNESS [None]
  - INTERVERTEBRAL DISC SPACE NARROWING [None]
  - HYPERLIPIDAEMIA [None]
  - RASH ERYTHEMATOUS [None]
  - NASOPHARYNGITIS [None]
  - PSORIASIS [None]
  - ANXIETY [None]
  - PALPITATIONS [None]
  - ORTHOPNOEA [None]
  - CONSTIPATION [None]
  - ECCHYMOSIS [None]
  - SKIN HYPERTROPHY [None]
  - WEIGHT INCREASED [None]
  - PAIN [None]
  - OSTEOARTHRITIS [None]
